FAERS Safety Report 13186075 (Version 2)
Quarter: 2017Q1

REPORT INFORMATION
  Report Type: Report from Study
  Country: None (occurrence: US)
  Receive Date: 20170204
  Receipt Date: 20170324
  Transmission Date: 20170428
  Serious: Yes (Other)
  Sender: FDA-Public Use
  Company Number: US-ABBVIE-17K-163-1855005-00

PATIENT
  Sex: Female

DRUGS (1)
  1. HUMIRA [Suspect]
     Active Substance: ADALIMUMAB
     Indication: HIDRADENITIS
     Route: 058
     Dates: end: 201703

REACTIONS (4)
  - Weight increased [Unknown]
  - Menstruation irregular [Unknown]
  - Polycystic ovaries [Unknown]
  - Heart rate irregular [Unknown]

NARRATIVE: CASE EVENT DATE: 2017
